FAERS Safety Report 5521965-0 (Version None)
Quarter: 2007Q4

REPORT INFORMATION
  Report Type: 
  Country: None (occurrence: None)
  Receive Date: 20071120
  Receipt Date: 20070531
  Transmission Date: 20080405
  Serious: No
  Sender: FDA-Public Use
  Company Number: US-BRISTOL-MYERS SQUIBB COMPANY-13799713

PATIENT
  Age: 73 Year
  Sex: Female
  Weight: 76 kg

DRUGS (3)
  1. AVALIDE [Suspect]
     Indication: HYPERTENSION
     Dosage: 150/12.5MG IRBESARTAN+HCTZ ONCE DAILY
  2. DILANTIN [Concomitant]
  3. ENSURE [Concomitant]

REACTIONS (1)
  - FATIGUE [None]
